FAERS Safety Report 10882690 (Version 3)
Quarter: 2015Q1

REPORT INFORMATION
  Report Type: Spontaneous
  Country: US (occurrence: US)
  Receive Date: 20150303
  Receipt Date: 20150320
  Transmission Date: 20150721
  Serious: Yes (Death, Other)
  Sender: FDA-Public Use
  Company Number: US-GLAXOSMITHKLINE-US2015014843

PATIENT
  Sex: Female

DRUGS (9)
  1. VITAMIN A [Concomitant]
     Active Substance: VITAMIN A
  2. VITAMIN B [Concomitant]
     Active Substance: VITAMIN B
  3. MEGESTROL ACETATE. [Concomitant]
     Active Substance: MEGESTROL ACETATE
  4. HYDROCODONE [Concomitant]
     Active Substance: HYDROCODONE
  5. BIOTENE [Concomitant]
     Active Substance: SODIUM MONOFLUOROPHOSPHATE
  6. PROMACTA [Suspect]
     Active Substance: ELTROMBOPAG OLAMINE
     Indication: MYELODYSPLASTIC SYNDROME
     Dosage: 50 MG, QD
     Route: 048
     Dates: start: 201409
  7. PROMACTA [Suspect]
     Active Substance: ELTROMBOPAG OLAMINE
     Dosage: 50 MG, QD
     Route: 048
     Dates: start: 201501
  8. IMODIUM [Concomitant]
     Active Substance: LOPERAMIDE HYDROCHLORIDE
  9. POTASSIUM [Concomitant]
     Active Substance: POTASSIUM

REACTIONS (10)
  - Gingival swelling [Recovering/Resolving]
  - Blood potassium decreased [Recovering/Resolving]
  - Abdominal tenderness [Unknown]
  - Gingival bleeding [Not Recovered/Not Resolved]
  - Oral pain [Not Recovered/Not Resolved]
  - Diarrhoea [Recovering/Resolving]
  - Disease progression [Fatal]
  - Dry mouth [Not Recovered/Not Resolved]
  - Weight decreased [Unknown]
  - Decreased appetite [Unknown]

NARRATIVE: CASE EVENT DATE: 2014
